FAERS Safety Report 11058139 (Version 1)
Quarter: 2015Q2

REPORT INFORMATION
  Report Type: Spontaneous
  Country: US (occurrence: None)
  Receive Date: 20150421
  Receipt Date: 20150421
  Transmission Date: 20150821
  Serious: Yes (Hospitalization)
  Sender: FDA-Public Use
  Company Number: KAD201504-000865

PATIENT
  Age: 65 Year
  Sex: Male

DRUGS (2)
  1. VIEKIRA PAK [Suspect]
     Active Substance: DASABUVIR\OMBITASVIR\PARITAPREVIR\RITONAVIR
     Indication: HEPATITIS C
     Dosage: TABLET, THREE AND ONE
     Route: 048
     Dates: start: 20150407, end: 20150410
  2. RIBAVIRIN (RIBAVIRIN) [Suspect]
     Active Substance: RIBAVIRIN
     Indication: HEPATITIS C
     Dosage: (800 MG)
     Route: 048
     Dates: start: 20150407, end: 20150410

REACTIONS (3)
  - Lactic acidosis [None]
  - Blood creatinine increased [None]
  - Leukocytosis [None]

NARRATIVE: CASE EVENT DATE: 20150408
